FAERS Safety Report 8421141-8 (Version None)
Quarter: 2012Q2

REPORT INFORMATION
  Report Type: 
  Country: None (occurrence: None)
  Receive Date: 20120608
  Receipt Date: 20120604
  Transmission Date: 20120825
  Serious: Yes (Life-Threatening)
  Sender: FDA-Public Use
  Company Number: BE-JNJFOC-20120410839

PATIENT
  Age: 48 Year
  Sex: Female
  Weight: 65 kg

DRUGS (3)
  1. IMONOGAS [Suspect]
     Indication: FLATULENCE
     Route: 048
     Dates: start: 20120418, end: 20120418
  2. FLUTICASONE PROPIONATE [Concomitant]
     Route: 065
  3. VENTOLIN [Concomitant]
     Route: 065

REACTIONS (7)
  - INSOMNIA [None]
  - PHARYNGEAL OEDEMA [None]
  - VOMITING [None]
  - NAUSEA [None]
  - DYSPNOEA [None]
  - SWOLLEN TONGUE [None]
  - HYPERSENSITIVITY [None]
